FAERS Safety Report 8577371-8 (Version None)
Quarter: 2012Q3

REPORT INFORMATION
  Report Type: 
  Country: None (occurrence: None)
  Receive Date: 20120725
  Receipt Date: 20120710
  Transmission Date: 20120928
  Serious: Yes (Death, Other)
  Sender: FDA-Public Use
  Company Number: FK201201965

PATIENT
  Age: 73 Year
  Sex: Female

DRUGS (3)
  1. OXALIPLATIN [Suspect]
     Indication: COLORECTAL CANCER
  2. LEUCOVORINE CALCIUM (CALCIUM FOLINATE) [Concomitant]
  3. FLUOROURACIL [Concomitant]

REACTIONS (10)
  - ACUTE RESPIRATORY DISTRESS SYNDROME [None]
  - CHEST PAIN [None]
  - COUGH [None]
  - DYSPNOEA [None]
  - PNEUMONITIS [None]
  - RESPIRATORY FAILURE [None]
  - PULMONARY FIBROSIS [None]
  - NEUTROPENIA [None]
  - PLEURAL EFFUSION [None]
  - DIFFUSE ALVEOLAR DAMAGE [None]
